FAERS Safety Report 4439513-5 (Version None)
Quarter: 2004Q3

REPORT INFORMATION
  Report Type: 
  Country: None (occurrence: None)
  Receive Date: 20040901
  Receipt Date: 20040901
  Transmission Date: 20050211
  Serious: Yes (Hospitalization)
  Sender: FDA-Public Use
  Company Number: None

PATIENT
  Sex: Female
  Weight: 78.4723 kg

DRUGS (12)
  1. CYTOXAN [Suspect]
     Indication: NON-HODGKIN'S LYMPHOMA
     Dosage: [PRIOR TO ADMISSION]
  2. ONCOVIN [Suspect]
     Indication: NON-HODGKIN'S LYMPHOMA
     Dosage: PRIOR TO ADMISSION
  3. PREDNISONE [Suspect]
     Indication: NON-HODGKIN'S LYMPHOMA
     Dosage: PRIOR TO ADMISSION
  4. DOXORUBICIN HCL [Suspect]
     Indication: NON-HODGKIN'S LYMPHOMA
     Dosage: PRIOR TO ADMISSION
  5. RITUXAN [Suspect]
     Indication: NON-HODGKIN'S LYMPHOMA
     Dosage: PRIOR TO ADMISSION
  6. TOFRANIL [Concomitant]
  7. PROTONIX [Concomitant]
  8. CIPRO [Concomitant]
  9. DIFLUCAN [Concomitant]
  10. LOMOTIL [Concomitant]
  11. EPOGEN [Concomitant]
  12. NEUPOGEN [Concomitant]

REACTIONS (3)
  - DIARRHOEA [None]
  - FEBRILE NEUTROPENIA [None]
  - VOMITING [None]
